FAERS Safety Report 9246527 (Version 1)
Quarter: 2013Q2

REPORT INFORMATION
  Report Type: Spontaneous
  Country: US (occurrence: US)
  Receive Date: 20130422
  Receipt Date: 20130422
  Transmission Date: 20140414
  Serious: No
  Sender: FDA-Public Use
  Company Number: US-ABBOTT-12P-163-1010973-00

PATIENT
  Age: 9 Year
  Sex: Female
  Weight: 53 kg

DRUGS (6)
  1. LUPRON DEPOT-PED (3 MONTH) [Suspect]
     Indication: PRECOCIOUS PUBERTY
     Route: 030
     Dates: start: 20120323
  2. LUPRON DEPOT-PED [Suspect]
     Indication: PRECOCIOUS PUBERTY
     Dates: start: 20120223, end: 20120223
  3. CLOBETASOL [Concomitant]
     Indication: THERMAL BURN
  4. FLUTICASONE [Concomitant]
     Indication: THERMAL BURN
  5. NASONEX [Concomitant]
     Indication: SEASONAL ALLERGY
  6. FLOVENT [Concomitant]
     Indication: ASTHMA

REACTIONS (1)
  - Headache [Recovered/Resolved]
